FAERS Safety Report 4335611-5 (Version None)
Quarter: 2004Q2

REPORT INFORMATION
  Report Type: 
  Country: None (occurrence: None)
  Receive Date: 20040406
  Receipt Date: 20040329
  Transmission Date: 20050107
  Serious: Yes (Death)
  Sender: FDA-Public Use
  Company Number: US011278

PATIENT
  Age: 56 Year
  Sex: Male
  Weight: 43.6 kg

DRUGS (4)
  1. EPOGEN [Suspect]
     Indication: ANAEMIA OF MALIGNANT DISEASE
     Dosage: 400000 U, WEEKLY
     Dates: start: 20020202
  2. VICODIN [Concomitant]
  3. PROCHLORPERAZINE EDISYLATE [Concomitant]
  4. LEVOFLOXACIN [Concomitant]

REACTIONS (2)
  - AGITATION [None]
  - HYPERTENSION [None]
